FAERS Safety Report 8719880 (Version 2)
Quarter: 2013Q1

REPORT INFORMATION
  Report Type: Spontaneous
  Country: US (occurrence: US)
  Receive Date: 20120813
  Receipt Date: 20130305
  Transmission Date: 20140127
  Serious: Yes (Disabling)
  Sender: FDA-Public Use
  Company Number: US-PFIZER INC-2012195780

PATIENT
  Sex: Female

DRUGS (3)
  1. EFFEXOR XR [Suspect]
     Dosage: 75 MG, 1X/DAY
     Route: 048
  2. XANAX [Concomitant]
     Dosage: UNK
  3. OXYCODONE [Concomitant]
     Dosage: UNK

REACTIONS (8)
  - Sciatic nerve injury [Unknown]
  - Fracture [Unknown]
  - Victim of abuse [Unknown]
  - Activities of daily living impaired [Unknown]
  - Musculoskeletal disorder [Unknown]
  - Dysstasia [Unknown]
  - Gait disturbance [Unknown]
  - Bone disorder [Unknown]
